FAERS Safety Report 8558476-4 (Version None)
Quarter: 2012Q3

REPORT INFORMATION
  Report Type: 
  Country: None (occurrence: None)
  Receive Date: 20120725
  Receipt Date: 20120725
  Transmission Date: 20120928
  Serious: No
  Sender: FDA-Public Use
  Company Number: None

PATIENT
  Age: 39 Year
  Sex: Female
  Weight: 79.3795 kg

DRUGS (3)
  1. SEROQUEL [Suspect]
     Indication: EATING DISORDER
  2. SEROQUEL [Suspect]
     Indication: BIPOLAR DISORDER
  3. SEROQUEL [Suspect]
     Indication: EATING DISORDER

REACTIONS (3)
  - LETHARGY [None]
  - FEELING ABNORMAL [None]
  - PRODUCT SUBSTITUTION ISSUE [None]
